FAERS Safety Report 6904187-8 (Version None)
Quarter: 2010Q3

REPORT INFORMATION
  Report Type: 
  Country: None (occurrence: None)
  Receive Date: 20100804
  Receipt Date: 20090327
  Transmission Date: 20110219
  Serious: No
  Sender: FDA-Public Use
  Company Number: US-PFIZER INC-2009191010

PATIENT
  Sex: Female
  Weight: 68.038 kg

DRUGS (6)
  1. LYRICA [Suspect]
     Indication: POST HERPETIC NEURALGIA
     Dosage: FREQUENCY: 2X/DAY, EVERY DAY;
     Route: 048
     Dates: start: 20090318
  2. LEVOXYL [Concomitant]
     Dosage: UNK
  3. HYDROCHLOROTHIAZIDE [Concomitant]
     Dosage: UNK
  4. FOSTEUM [Concomitant]
     Dosage: UNK
  5. VITAMIN TAB [Concomitant]
     Dosage: UNK
  6. GENERAL NUTRIENTS [Suspect]

REACTIONS (2)
  - FATIGUE [None]
  - IMPAIRED DRIVING ABILITY [None]
